FAERS Safety Report 7101899-0 (Version None)
Quarter: 2010Q4

REPORT INFORMATION
  Report Type: 
  Country: None (occurrence: None)
  Receive Date: 20101108
  Receipt Date: 20101101
  Transmission Date: 20110411
  Serious: Yes (Other)
  Sender: FDA-Public Use
  Company Number: 021416

PATIENT
  Sex: Male

DRUGS (6)
  1. DEPONIT (DEPONIT 5) [Suspect]
     Dosage: ONE PATCH  DAILY, TRANSDERMAL
     Route: 062
  2. XALATAN [Concomitant]
  3. ALPHAGAN [Concomitant]
  4. DIAMOX [Concomitant]
  5. UNKNOWN [Concomitant]
  6. ASTRIN [Concomitant]

REACTIONS (1)
  - GLAUCOMA [None]
